FAERS Safety Report 24081703 (Version 3)
Quarter: 2024Q4

REPORT INFORMATION
  Report Type: Spontaneous
  Country: US (occurrence: US)
  Receive Date: 20240712
  Receipt Date: 20241010
  Transmission Date: 20250114
  Serious: Yes (Death, Other)
  Sender: BRISTOL MYERS SQUIBB
  Company Number: US-BRISTOL-MYERS SQUIBB COMPANY-2024-110014

PATIENT
  Age: 69 Year
  Sex: Male

DRUGS (2)
  1. OPDIVO [Suspect]
     Active Substance: NIVOLUMAB
     Indication: Colon cancer
     Dosage: DOSE : OPD: 210.9MG / YER: 70.3 MG;     FREQ : OPD: EVERY 14 DAYS / YER EVERY 42 DAYS;STRENGTH AND P
     Route: 042
     Dates: start: 20231011
  2. YERVOY [Suspect]
     Active Substance: IPILIMUMAB
     Indication: Colon cancer
     Dosage: DOSE : OPD: 210.9MG / YER: 70.3 MG;     FREQ : OPD: EVERY 14 DAYS / YER EVERY 42 DAYS;STRENGTH AND P
     Route: 042
     Dates: start: 20231011

REACTIONS (2)
  - Death [Fatal]
  - Off label use [Unknown]

NARRATIVE: CASE EVENT DATE: 20231209
